FAERS Safety Report 6441661-5 (Version None)
Quarter: 2009Q4

REPORT INFORMATION
  Report Type: 
  Country: None (occurrence: None)
  Receive Date: 20091113
  Receipt Date: 20091113
  Transmission Date: 20100525
  Serious: Yes (Other)
  Sender: FDA-Public Use
  Company Number: None

PATIENT
  Age: 58 Year
  Sex: Male
  Weight: 74.8 kg

DRUGS (5)
  1. NITROGLYCERIN [Suspect]
     Indication: CHEST PAIN
     Dosage: 0.4 MG ONCE SL
     Route: 060
     Dates: start: 20091108, end: 20091108
  2. MAALOX [Concomitant]
  3. HEPARIN [Concomitant]
  4. METOPROLOL [Concomitant]
  5. ZOFRAN [Concomitant]

REACTIONS (3)
  - CONVULSION [None]
  - SYNCOPE [None]
  - VOMITING [None]
